FAERS Safety Report 9803963 (Version 1)
Quarter: 2014Q1

REPORT INFORMATION
  Report Type: Spontaneous
  Country: US (occurrence: US)
  Receive Date: 20140108
  Receipt Date: 20140108
  Transmission Date: 20141002
  Serious: Yes (Hospitalization)
  Sender: FDA-Public Use
  Company Number: US-MALLINCKRODT-T201305207

PATIENT
  Age: 45 Year
  Sex: Male

DRUGS (1)
  1. GABLOFEN [Suspect]
     Indication: MUSCLE SPASTICITY
     Dosage: 709 MCG/DAY
     Route: 037

REACTIONS (5)
  - Bladder spasm [Unknown]
  - Ascites [Recovering/Resolving]
  - Muscle spasms [Unknown]
  - Pruritus [Unknown]
  - Urinary retention [Recovering/Resolving]
